FAERS Safety Report 7865948-4 (Version None)
Quarter: 2011Q4

REPORT INFORMATION
  Report Type: 
  Country: None (occurrence: None)
  Receive Date: 20111028
  Receipt Date: 20110324
  Transmission Date: 20120403
  Serious: No
  Sender: FDA-Public Use
  Company Number: US-GLAXOSMITHKLINE-A0919833A

PATIENT
  Age: 45 Year
  Sex: Male

DRUGS (2)
  1. ALLERGY MEDICATION [Concomitant]
  2. ADVAIR DISKUS 100/50 [Suspect]
     Indication: PRODUCT USED FOR UNKNOWN INDICATION
     Dosage: 1PUFF TWICE PER DAY
     Route: 055

REACTIONS (4)
  - OVERDOSE [None]
  - DRUG ADMINISTRATION ERROR [None]
  - PALPITATIONS [None]
  - PRODUCT QUALITY ISSUE [None]
